FAERS Safety Report 7220676-3 (Version None)
Quarter: 2011Q1

REPORT INFORMATION
  Report Type: 
  Country: None (occurrence: None)
  Receive Date: 20110111
  Receipt Date: 20110103
  Transmission Date: 20110831
  Serious: Yes (Other)
  Sender: FDA-Public Use
  Company Number: US-ELI_LILLY_AND_COMPANY-US201101001130

PATIENT
  Sex: Male

DRUGS (1)
  1. HUMALOG MIX 75/25 [Suspect]
     Indication: DIABETES MELLITUS
     Dates: start: 20010101

REACTIONS (5)
  - NASOPHARYNGITIS [None]
  - CARDIAC FAILURE CONGESTIVE [None]
  - BLOOD GLUCOSE FLUCTUATION [None]
  - CORONARY ARTERY BYPASS [None]
  - BLOOD GLUCOSE INCREASED [None]
